FAERS Safety Report 6189868-9 (Version None)
Quarter: 2009Q2

REPORT INFORMATION
  Report Type: 
  Country: None (occurrence: None)
  Receive Date: 20090512
  Receipt Date: 20090512
  Transmission Date: 20091009
  Serious: No
  Sender: FDA-Public Use
  Company Number: None

PATIENT
  Sex: Female
  Weight: 62.1428 kg

DRUGS (1)
  1. MIRENA [Suspect]
     Dosage: 1 INTRA-UTERINE
     Route: 015
     Dates: start: 20081008, end: 20090422

REACTIONS (7)
  - ACNE [None]
  - BLOOD GLUCOSE INCREASED [None]
  - DEPRESSION [None]
  - FATIGUE [None]
  - LOSS OF LIBIDO [None]
  - MOOD SWINGS [None]
  - MUSCLE SPASMS [None]
